FAERS Safety Report 18562847 (Version 2)
Quarter: 2021Q4

REPORT INFORMATION
  Report Type: Spontaneous
  Country: US (occurrence: None)
  Receive Date: 20201130
  Receipt Date: 20211202
  Transmission Date: 20220304
  Serious: No
  Sender: FDA-Public Use
  Company Number: US-ROCHE-2677967

PATIENT
  Sex: Female
  Weight: 72.640 kg

DRUGS (1)
  1. LUCENTIS [Suspect]
     Active Substance: RANIBIZUMAB
     Indication: Eye disorder
     Route: 050
     Dates: start: 201906

REACTIONS (5)
  - Weight increased [Unknown]
  - Cough [Unknown]
  - Nasopharyngitis [Unknown]
  - Intentional product use issue [Unknown]
  - Off label use [Unknown]
